FAERS Safety Report 8960350 (Version 2)
Quarter: 2014Q2

REPORT INFORMATION
  Report Type: Spontaneous
  Country: US (occurrence: US)
  Receive Date: 20121212
  Receipt Date: 20140411
  Transmission Date: 20141212
  Serious: Yes (Hospitalization)
  Sender: FDA-Public Use
  Company Number: US-BAYER-2012-129193

PATIENT
  Age: 23 Year
  Sex: Female
  Weight: 92.52 kg

DRUGS (2)
  1. YAZ [Suspect]
     Dosage: UNK
     Dates: start: 200612, end: 2010
  2. RANITIDINE [Concomitant]
     Dosage: 300 MG, UNK
     Dates: start: 20090120

REACTIONS (2)
  - Cholecystectomy [None]
  - Cholecystitis chronic [None]
